FAERS Safety Report 8114229-2 (Version None)
Quarter: 2012Q1

REPORT INFORMATION
  Report Type: 
  Country: None (occurrence: None)
  Receive Date: 20120205
  Receipt Date: 20120123
  Transmission Date: 20120608
  Serious: Yes (Other)
  Sender: FDA-Public Use
  Company Number: FR-BRISTOL-MYERS SQUIBB COMPANY-16372120

PATIENT
  Sex: Female

DRUGS (2)
  1. SPIRONOLACTONE [Concomitant]
  2. LYSODREN [Suspect]
     Indication: ADRENAL GLAND CANCER METASTATIC
     Dates: start: 20111001

REACTIONS (2)
  - MEDICATION ERROR [None]
  - PLEURAL EFFUSION [None]
